FAERS Safety Report 10767338 (Version 1)
Quarter: 2015Q1

REPORT INFORMATION
  Report Type: Spontaneous
  Country: US (occurrence: US)
  Receive Date: 20150205
  Receipt Date: 20150205
  Transmission Date: 20150721
  Serious: Yes (Other)
  Sender: FDA-Public Use
  Company Number: US-ELI_LILLY_AND_COMPANY-US201501002690

PATIENT
  Sex: Male

DRUGS (2)
  1. HUMALOG [Suspect]
     Active Substance: INSULIN LISPRO
     Indication: DIABETES MELLITUS
     Dosage: 20 U, EACH MORNING
     Route: 065
     Dates: start: 2013
  2. HUMALOG [Suspect]
     Active Substance: INSULIN LISPRO
     Dosage: UNK UNK, PRN
     Route: 065
     Dates: start: 2013

REACTIONS (9)
  - Anxiety [Unknown]
  - Stress [Unknown]
  - Bronchitis [Unknown]
  - Asthma [Unknown]
  - Retinal detachment [Unknown]
  - Road traffic accident [Unknown]
  - Insomnia [Unknown]
  - Drug dose omission [Unknown]
  - Electrocution [Unknown]

NARRATIVE: CASE EVENT DATE: 20150106
